FAERS Safety Report 5469457-1 (Version None)
Quarter: 2007Q3

REPORT INFORMATION
  Report Type: 
  Country: None (occurrence: None)
  Receive Date: 20070925
  Receipt Date: 20070925
  Transmission Date: 20080115
  Serious: No
  Sender: FDA-Public Use
  Company Number: None

PATIENT
  Sex: Male
  Weight: 123.5 kg

DRUGS (3)
  1. CYTARABINE [Suspect]
     Dosage: 1645 MG
  2. DAUNORUBICIN HCL [Suspect]
     Dosage: 318 MG
  3. MYLOTARG [Suspect]
     Dosage: 14 MG

REACTIONS (4)
  - ALANINE AMINOTRANSFERASE INCREASED [None]
  - ASPARTATE AMINOTRANSFERASE INCREASED [None]
  - HAEMODIALYSIS [None]
  - RENAL FAILURE [None]
